FAERS Safety Report 8963584 (Version 1)
Quarter: 2012Q4

REPORT INFORMATION
  Report Type: 
  Country: CH (occurrence: CH)
  Receive Date: 20121214
  Receipt Date: 20121214
  Transmission Date: 20130627
  Serious: Yes (Death)
  Sender: FDA-Public Use
  Company Number: CH-BRISTOL-MYERS SQUIBB COMPANY-17200494

PATIENT
  Age: 69 Year
  Sex: Female

DRUGS (1)
  1. YERVOY [Suspect]
     Dates: start: 20121122

REACTIONS (1)
  - Death [Fatal]
